FAERS Safety Report 11607602 (Version 1)
Quarter: 2015Q4

REPORT INFORMATION
  Report Type: Spontaneous
  Country: US (occurrence: US)
  Receive Date: 20151007
  Receipt Date: 20151007
  Transmission Date: 20160304
  Serious: Yes (Death, Hospitalization, Other)
  Sender: FDA-Public Use
  Company Number: US-BRISTOL-MYERS SQUIBB COMPANY-2001COU1100

PATIENT
  Age: 27 Year
  Sex: Female

DRUGS (3)
  1. COUMADIN [Suspect]
     Active Substance: WARFARIN SODIUM
     Indication: MITRAL VALVE REPLACEMENT
     Dosage: UNK UNK
     Route: 048
     Dates: start: 19950501, end: 19991201
  2. LOVENOX [Concomitant]
     Active Substance: ENOXAPARIN SODIUM
     Indication: PRODUCT USED FOR UNKNOWN INDICATION
     Dosage: 1 MG/KG, BID
     Route: 058
     Dates: start: 1999
  3. DIGOXIN. [Concomitant]
     Active Substance: DIGOXIN
     Indication: PRODUCT USED FOR UNKNOWN INDICATION
     Dosage: UNK
     Route: 065

REACTIONS (5)
  - Cardiac valve replacement complication [Recovered/Resolved]
  - Pregnancy [Recovered/Resolved]
  - Abortion spontaneous [Unknown]
  - Haemorrhage intracranial [Fatal]
  - Foetal death [Unknown]

NARRATIVE: CASE EVENT DATE: 1999
